FAERS Safety Report 18254421 (Version 2)
Quarter: 2020Q3

REPORT INFORMATION
  Report Type: Spontaneous
  Country: US (occurrence: US)
  Receive Date: 20200910
  Receipt Date: 20200923
  Transmission Date: 20201103
  Serious: No
  Sender: FDA-Public Use
  Company Number: NVSC2020US247568

PATIENT
  Sex: Female
  Weight: 55 kg

DRUGS (1)
  1. ADAKVEO [Suspect]
     Active Substance: CRIZANLIZUMAB-TMCA
     Indication: SICKLE CELL ANAEMIA WITH CRISIS
     Dosage: 270 MG, UNKNOWN (5 MG/KG/MONTH)
     Route: 042
     Dates: start: 20200528, end: 20200611

REACTIONS (1)
  - Menorrhagia [Recovered/Resolved]
